FAERS Safety Report 25894661 (Version 1)
Quarter: 2025Q4

REPORT INFORMATION
  Report Type: Spontaneous
  Country: EU (occurrence: EU)
  Receive Date: 20251008
  Receipt Date: 20251008
  Transmission Date: 20260117
  Serious: Yes (Other)
  Sender: LEADING PHARMA
  Company Number: EU-LEADINGPHARMA-FR-2025LEALIT00199

PATIENT
  Age: 82 Year

DRUGS (5)
  1. HYDROXYUREA [Suspect]
     Active Substance: HYDROXYUREA
     Indication: Essential thrombocythaemia
     Route: 065
     Dates: end: 2020
  2. HYDROXYUREA [Suspect]
     Active Substance: HYDROXYUREA
     Dosage: REINTRODUCTION OF LOW-DOSE HYDROXYUREA
     Route: 065
  3. IMATINIB [Concomitant]
     Active Substance: IMATINIB
     Indication: Chronic myeloid leukaemia
     Route: 065
     Dates: start: 202406
  4. IRON SUCROSE [Concomitant]
     Active Substance: IRON SUCROSE
     Indication: Iron deficiency
     Route: 042
  5. DASATINIB [Concomitant]
     Active Substance: DASATINIB
     Indication: Chronic myeloid leukaemia
     Dosage: DAILY
     Route: 065

REACTIONS (3)
  - Haematotoxicity [Unknown]
  - Therapeutic response decreased [Unknown]
  - Product use in unapproved indication [Unknown]

NARRATIVE: CASE EVENT DATE: 20200101
